FAERS Safety Report 7545845-4 (Version None)
Quarter: 2011Q2

REPORT INFORMATION
  Report Type: 
  Country: None (occurrence: None)
  Receive Date: 20110613
  Receipt Date: 20110613
  Transmission Date: 20111010
  Serious: No
  Sender: FDA-Public Use
  Company Number: None

PATIENT
  Age: 65 Year
  Sex: Male

DRUGS (1)
  1. COUMADIN [Suspect]
     Indication: COAGULOPATHY
     Dosage: 1 TABLET DAILY PO
     Route: 048
     Dates: start: 20110301, end: 20110601

REACTIONS (3)
  - PRODUCT QUALITY ISSUE [None]
  - PROTHROMBIN TIME ABNORMAL [None]
  - INTERNATIONAL NORMALISED RATIO FLUCTUATION [None]
